FAERS Safety Report 10219738 (Version 1)
Quarter: 2014Q2

REPORT INFORMATION
  Report Type: Spontaneous
  Country: AU (occurrence: AU)
  Receive Date: 20140605
  Receipt Date: 20140605
  Transmission Date: 20141212
  Serious: Yes (Death)
  Sender: FDA-Public Use
  Company Number: AU-GE HEALTHCARE MEDICAL DIAGNOSTICS-VISP-PR-1405S-0245

PATIENT
  Age: 71 Year
  Sex: Male

DRUGS (2)
  1. VISIPAQUE [Suspect]
     Indication: GASTROINTESTINAL CARCINOMA
     Route: 042
     Dates: start: 20140512, end: 20140512
  2. VISIPAQUE [Suspect]
     Indication: DIAGNOSTIC PROCEDURE

REACTIONS (5)
  - Pulse absent [Fatal]
  - Respiratory arrest [Fatal]
  - Hyperhidrosis [Fatal]
  - Syncope [Fatal]
  - Feeling hot [Fatal]
